FAERS Safety Report 23672728 (Version 1)
Quarter: 2024Q1

REPORT INFORMATION
  Report Type: Report from Study
  Country: CH (occurrence: CH)
  Receive Date: 20240326
  Receipt Date: 20240326
  Transmission Date: 20240410
  Serious: Yes (Life-Threatening, Hospitalization)
  Sender: FDA-Public Use
  Company Number: CH-002147023-NVSC2022CH181481

PATIENT
  Age: 78 Year
  Sex: Female
  Weight: 70.8 kg

DRUGS (5)
  1. KISQALI [Suspect]
     Active Substance: RIBOCICLIB
     Indication: Hormone receptor positive HER2 negative breast cancer
     Dosage: 600 MG (3 WEEKS ON, 1 WEEK OFF)
     Route: 048
     Dates: start: 20220218
  2. KISQALI [Suspect]
     Active Substance: RIBOCICLIB
     Dosage: 400 MG
     Route: 048
     Dates: start: 20220511, end: 20220608
  3. KISQALI [Suspect]
     Active Substance: RIBOCICLIB
     Dosage: 200 MG 3 WEEKS ON, 1 WEEK OFF (4 WEEK CYCLE)
     Route: 065
     Dates: start: 20220608, end: 20220705
  4. KISQALI [Suspect]
     Active Substance: RIBOCICLIB
     Dosage: 200 MG, 2 WEEKS ON,1 WEEK OFF (3 WEEK CYCLE
     Route: 048
     Dates: start: 20220706
  5. FEMARA [Suspect]
     Active Substance: LETROZOLE
     Indication: Hormone receptor positive HER2 negative breast cancer
     Dosage: 2.5 MG
     Route: 048
     Dates: start: 20220218

REACTIONS (10)
  - Neutrophil count decreased [Recovered/Resolved]
  - Neutrophil count decreased [Recovered/Resolved]
  - Neutrophil count decreased [Recovered/Resolved]
  - Pneumonitis [Recovered/Resolved]
  - Asthenia [Recovered/Resolved]
  - Cough [Recovered/Resolved]
  - Pyrexia [Recovered/Resolved]
  - Fatigue [Unknown]
  - Dyspnoea [Unknown]
  - Malaise [Unknown]

NARRATIVE: CASE EVENT DATE: 20220406
